FAERS Safety Report 15375974 (Version 2)
Quarter: 2019Q1

REPORT INFORMATION
  Report Type: Spontaneous
  Country: US (occurrence: US)
  Receive Date: 20180912
  Receipt Date: 20190301
  Transmission Date: 20190417
  Serious: No
  Sender: FDA-Public Use
  Company Number: US-PFIZER INC-2018364624

PATIENT
  Age: 17 Year
  Sex: Female
  Weight: 120 kg

DRUGS (2)
  1. DEPO-PROVERA [Suspect]
     Active Substance: MEDROXYPROGESTERONE ACETATE
     Indication: CONTRACEPTION
     Dosage: 150 MG, CYCLIC (ONCE EVERY 3 MONTHS)
  2. DEPO-PROVERA [Suspect]
     Active Substance: MEDROXYPROGESTERONE ACETATE
     Dosage: 150 MG, EVERY 3 MONTHS
     Route: 030

REACTIONS (2)
  - Product administration error [Unknown]
  - Obesity [Unknown]

NARRATIVE: CASE EVENT DATE: 20180905
